FAERS Safety Report 19443189 (Version 1)
Quarter: 2021Q2

REPORT INFORMATION
  Report Type: Spontaneous
  Country: US (occurrence: US)
  Receive Date: 20210621
  Receipt Date: 20210621
  Transmission Date: 20210717
  Serious: Yes (Other)
  Sender: FDA-Public Use
  Company Number: US-PFIZER INC-2021673018

PATIENT
  Age: 74 Year
  Sex: Female
  Weight: 101.13 kg

DRUGS (1)
  1. XELJANZ XR [Suspect]
     Active Substance: TOFACITINIB CITRATE
     Indication: RHEUMATOID ARTHRITIS
     Dosage: 11 MG, DAILY
     Route: 048
     Dates: start: 20201207, end: 202104

REACTIONS (3)
  - Blood cholesterol increased [Unknown]
  - Blood pressure increased [Unknown]
  - Renal impairment [Unknown]
